FAERS Safety Report 10383811 (Version 1)
Quarter: 2014Q1

REPORT INFORMATION
  Report Type: Spontaneous
  Country: US (occurrence: None)
  Receive Date: 20140306
  Receipt Date: 20140306
  Transmission Date: 20141002
  Serious: Yes (Other)
  Sender: FDA-Public Use
  Company Number: 163-21880-13113276

PATIENT
  Age: 57 Year
  Sex: Female
  Weight: 92.99 kg

DRUGS (16)
  1. REVLIMID (LENALIDOMIDE)(25 MILLIGRAM, CAPSULES) [Suspect]
     Indication: PLASMA CELL MYELOMA
     Dosage: 14 IN 28 D,
     Route: 048
     Dates: start: 20131008, end: 2013
  2. WELLBUTRIN XL(BUPROPION HYDROCHLORIDE)(UNKNOWN) [Concomitant]
  3. KLONOPIN(CLONAZEPAM) (UNKNOWN) [Concomitant]
  4. ZYRTEC(CETIRIZINE HYDROCHLORIDE)(UNKNOWN) [Concomitant]
  5. FLONASE(FLUTICASONE PROPIONATE)(UNKNOWN) [Concomitant]
  6. SUDAFED PRESSURE + PAIN(PSEUDOEPHEDRINE HYDROCHLORIDE)(UNKNOWN) [Concomitant]
  7. ALBUTEROL SULFATE(SALBUTAMOL SULFATE)(UNKNOWN) [Concomitant]
  8. TOPAMAX(TOPIRAMATE)(UNKNOWN) [Concomitant]
  9. DICLOFENAC SODIUM(DICLOFENAC SODIUM)(UNKNOWN) [Concomitant]
  10. PERCOCET(OXYCOCET)(UNKNOWN) [Concomitant]
  11. LOTREL(LOTREL)(UNKNOWN) [Concomitant]
  12. CALCITONIN(CALCITONIN)(UNKNOWN) [Concomitant]
  13. METRONIDAZOLE(METRONIDAZOLE)(UNKNOWN) [Concomitant]
  14. ONDANSETRON(ONDANSETRON)(UNKNOWN) [Concomitant]
  15. STOOL SOFTENER(DOCUSATE SODIUM)(UNKNOWN) [Concomitant]
  16. ALAWAY(KETOTIFEN FUMARATE)(SOLUTION) [Concomitant]

REACTIONS (1)
  - Rash [None]
